FAERS Safety Report 25113748 (Version 1)
Quarter: 2025Q1

REPORT INFORMATION
  Report Type: Spontaneous
  Country: US (occurrence: US)
  Receive Date: 20250324
  Receipt Date: 20250324
  Transmission Date: 20250408
  Serious: No
  Sender: AMARIN
  Company Number: US-Amarin Pharma  Inc-2025AMR000091

PATIENT
  Age: 75 Year
  Sex: Male

DRUGS (2)
  1. VASCEPA [Suspect]
     Active Substance: ICOSAPENT ETHYL
     Indication: Cardiovascular disorder
     Route: 048
  2. VASCEPA [Suspect]
     Active Substance: ICOSAPENT ETHYL
     Dosage: RESTARTED
     Route: 048

REACTIONS (5)
  - Poor quality product administered [Unknown]
  - Wrong technique in product usage process [Unknown]
  - Therapy interrupted [Unknown]
  - Product odour abnormal [Unknown]
  - Product physical issue [Unknown]

NARRATIVE: CASE EVENT DATE: 20250201
